FAERS Safety Report 5989720-5 (Version None)
Quarter: 2008Q4

REPORT INFORMATION
  Report Type: 
  Country: None (occurrence: None)
  Receive Date: 20081210
  Receipt Date: 20081201
  Transmission Date: 20090506
  Serious: Yes (Other)
  Sender: FDA-Public Use
  Company Number: GB-B.I. PHARMACEUTICALS,INC./RIDGEFIELD-2008-UK-01821UK

PATIENT
  Age: 84 Year
  Sex: Female

DRUGS (15)
  1. TIOTROPIUM (00015/0190/A) [Suspect]
     Indication: CHRONIC OBSTRUCTIVE PULMONARY DISEASE
     Dosage: 18MCG
     Route: 055
  2. ASPIRIN [Concomitant]
     Dosage: 75MG
     Route: 048
  3. CYCLIZINE [Concomitant]
     Dosage: 50MGX3 AS REQUIRED
     Route: 048
  4. FENTANYL-100 [Concomitant]
     Dosage: 125MCG 1/72HOURS
     Route: 061
  5. HYPROMELLOSE [Concomitant]
     Route: 048
  6. LACTULOSE [Concomitant]
     Dosage: 15MLX2 DAILY
  7. MEBEVERINE [Concomitant]
     Dosage: 135MGX2 DAILY
     Route: 048
  8. MORPHINE SULFATE [Concomitant]
  9. OMEPRAZOLE [Concomitant]
     Dosage: 20MG
     Route: 048
  10. POTASSIUM CHLORIDE [Concomitant]
     Dosage: 1DFX2 DAILY
     Route: 048
  11. SENNA [Concomitant]
     Dosage: 7.5MG X4 1 DAYS
  12. TORSEMIDE [Concomitant]
     Dosage: 5MG
     Route: 048
  13. VITAMIN TAB [Concomitant]
     Dosage: 1DF
     Route: 048
  14. ZIMOVANE [Concomitant]
     Dosage: 7.5MG
     Route: 048
  15. MACROGOL [Concomitant]

REACTIONS (2)
  - LIP BLISTER [None]
  - OROPHARYNGEAL BLISTERING [None]
